FAERS Safety Report 4759856-5 (Version None)
Quarter: 2005Q3

REPORT INFORMATION
  Report Type: 
  Country: None (occurrence: None)
  Receive Date: 20050831
  Receipt Date: 20050831
  Transmission Date: 20060218
  Serious: Yes (Hospitalization)
  Sender: FDA-Public Use
  Company Number: None

PATIENT
  Age: 67 Year
  Sex: Male
  Weight: 77.5651 kg

DRUGS (6)
  1. ALEVE [Suspect]
     Indication: FLANK PAIN
     Dosage: PO
     Route: 048
     Dates: start: 20050725, end: 20050731
  2. LIPITOR [Concomitant]
  3. HYDROCHLOROTHIAZIDE [Concomitant]
  4. VIAGRA [Concomitant]
  5. ENTERIC COATED BABY ASPIRIN [Concomitant]
  6. NSAID [Concomitant]

REACTIONS (5)
  - DIZZINESS [None]
  - GASTROINTESTINAL ULCER [None]
  - HAEMATOCRIT DECREASED [None]
  - HAEMOGLOBIN DECREASED [None]
  - PAIN [None]
